FAERS Safety Report 11692659 (Version 1)
Quarter: 2015Q4

REPORT INFORMATION
  Report Type: Report from Study
  Country: BR (occurrence: BR)
  Receive Date: 20151103
  Receipt Date: 20151103
  Transmission Date: 20160304
  Serious: Yes (Life-Threatening, Other)
  Sender: FDA-Public Use
  Company Number: PHHY2015BR141273

PATIENT
  Sex: Male
  Weight: 87 kg

DRUGS (2)
  1. FORASEQ [Suspect]
     Active Substance: BUDESONIDE\FORMOTEROL FUMARATE
     Dosage: UNK, BID
     Route: 065
  2. FORASEQ [Suspect]
     Active Substance: BUDESONIDE\FORMOTEROL FUMARATE
     Indication: ASTHMA
     Dosage: 1 DF (40/12 MCG), TID
     Route: 065

REACTIONS (9)
  - Hypertension [Unknown]
  - Coating in mouth [Unknown]
  - Hypersensitivity [Recovered/Resolved]
  - Dehydration [Unknown]
  - Tachycardia [Unknown]
  - Urticaria [Unknown]
  - Feeling abnormal [Unknown]
  - Headache [Unknown]
  - Pruritus [Unknown]
